FAERS Safety Report 6561446-9 (Version None)
Quarter: 2010Q1

REPORT INFORMATION
  Report Type: 
  Country: None (occurrence: None)
  Receive Date: 20100130
  Receipt Date: 20091014
  Transmission Date: 20100710
  Serious: Yes (Other)
  Sender: FDA-Public Use
  Company Number: US-ABBOTT-09P-163-0603102-00

PATIENT
  Sex: Male
  Weight: 79.904 kg

DRUGS (5)
  1. HUMIRA [Suspect]
     Indication: RHEUMATOID ARTHRITIS
     Route: 058
     Dates: start: 20080901, end: 20090201
  2. HUMIRA [Suspect]
     Route: 058
     Dates: start: 20090901
  3. SYNTHROID [Concomitant]
     Indication: DRUG USE FOR UNKNOWN INDICATION
  4. AZULFIDINE [Concomitant]
     Indication: DRUG USE FOR UNKNOWN INDICATION
  5. ARAVA [Concomitant]
     Indication: DRUG USE FOR UNKNOWN INDICATION

REACTIONS (5)
  - INJECTION SITE HAEMATOMA [None]
  - LOCALISED INFECTION [None]
  - MYALGIA [None]
  - PAIN IN EXTREMITY [None]
  - TENDERNESS [None]
